FAERS Safety Report 8759360 (Version 1)
Quarter: 2012Q4

REPORT INFORMATION
  Report Type: 
  Country: US (occurrence: US)
  Receive Date: 20120829
  Receipt Date: 20120829
  Transmission Date: 20130627
  Serious: No
  Sender: FDA-Public Use
  Company Number: US-JNJFOC-20120803565

PATIENT
  Age: 56 Year
  Sex: Male
  Weight: 73.48 kg

DRUGS (4)
  1. INVEGA [Suspect]
     Indication: SCHIZOAFFECTIVE DISORDER
     Route: 048
  2. INVEGA [Suspect]
     Indication: SCHIZOAFFECTIVE DISORDER
     Route: 048
     Dates: start: 20120731
  3. MELLARIL [Concomitant]
     Route: 065
  4. TRAMADOL [Concomitant]
     Route: 065

REACTIONS (2)
  - Hypotension [Recovered/Resolved]
  - Sedation [Recovered/Resolved]
